FAERS Safety Report 10576969 (Version 1)
Quarter: 2014Q4

REPORT INFORMATION
  Report Type: Spontaneous
  Country: US (occurrence: US)
  Receive Date: 20141111
  Receipt Date: 20141111
  Transmission Date: 20150529
  Serious: Yes (Other)
  Sender: FDA-Public Use
  Company Number: US-ASTRAZENECA-2014SE84508

PATIENT
  Age: 19240 Day
  Sex: Female
  Weight: 79.4 kg

DRUGS (2)
  1. PULMICORT FLEXHALER [Suspect]
     Active Substance: BUDESONIDE
     Indication: ASTHMA
     Dosage: 180 MICROGRAMS, 1 PUFF BID
     Route: 055
     Dates: start: 20141023, end: 20141027
  2. VITAMINS [Concomitant]
     Active Substance: VITAMINS
     Indication: SUPPLEMENTATION THERAPY
     Route: 048

REACTIONS (5)
  - Hypersensitivity [Unknown]
  - Choking [Unknown]
  - Throat tightness [Unknown]
  - Dry throat [Unknown]
  - Off label use [Recovered/Resolved]

NARRATIVE: CASE EVENT DATE: 20141023
